FAERS Safety Report 5667589-6 (Version None)
Quarter: 2008Q1

REPORT INFORMATION
  Report Type: 
  Country: None (occurrence: None)
  Receive Date: 20080315
  Receipt Date: 20080125
  Transmission Date: 20080703
  Serious: No
  Sender: FDA-Public Use
  Company Number: US-ABBOTT-08P-163-0435537-00

PATIENT
  Sex: Female
  Weight: 127 kg

DRUGS (11)
  1. HUMIRA [Suspect]
     Indication: PSORIATIC ARTHROPATHY
     Route: 058
     Dates: start: 20070801
  2. PROPRANOLOL [Concomitant]
     Indication: HYPERTENSION
     Route: 048
  3. LISINOPRIL [Concomitant]
     Indication: HYPERTENSION
     Route: 048
  4. FLUOXETINE HYDROCHLORIDE [Concomitant]
     Indication: DEPRESSION
     Route: 048
  5. ATORVASTATIN CALCIUM [Concomitant]
     Indication: BLOOD CHOLESTEROL INCREASED
     Route: 048
  6. ESTRODIL [Concomitant]
     Indication: HORMONE REPLACEMENT THERAPY
     Route: 048
  7. QUETIAPINE [Concomitant]
     Indication: DEPRESSION
     Route: 048
  8. QUETIAPINE [Concomitant]
     Indication: BIPOLAR DISORDER
  9. PULMICORT [Concomitant]
     Indication: LUNG DISORDER
     Route: 048
  10. PANTOPRAZOLE SODIUM [Concomitant]
     Indication: DYSPEPSIA
     Route: 048
  11. KETOPROFEN [Concomitant]
     Indication: PAIN MANAGEMENT
     Route: 048

REACTIONS (7)
  - CYSTITIS [None]
  - FATIGUE [None]
  - HEADACHE [None]
  - HEPATIC ENZYME INCREASED [None]
  - INJECTION SITE SWELLING [None]
  - NAUSEA [None]
  - PNEUMONIA [None]
